FAERS Safety Report 25994895 (Version 2)
Quarter: 2025Q4

REPORT INFORMATION
  Report Type: Spontaneous
  Country: EU (occurrence: EU)
  Receive Date: 20251104
  Receipt Date: 20251111
  Transmission Date: 20260117
  Serious: Yes (Hospitalization, Other)
  Sender: TORRENT PHARMA INC.
  Company Number: None

PATIENT
  Age: 13 Month
  Sex: Male
  Weight: 11 kg

DRUGS (1)
  1. ACYCLOVIR [Suspect]
     Active Substance: ACYCLOVIR
     Indication: Product used for unknown indication
     Dosage: MOTHER DOSE: 800 MILLIGRAMS VIA ORAL ROUTE ON AUG-2025 FOR 7 DAYS,TAKEN FROM THE MOTHER
     Route: 063

REACTIONS (2)
  - Anaemia [Unknown]
  - Maternal exposure during breast feeding [Unknown]

NARRATIVE: CASE EVENT DATE: 20250818
